FAERS Safety Report 6053838-1 (Version None)
Quarter: 2009Q1

REPORT INFORMATION
  Report Type: 
  Country: None (occurrence: None)
  Receive Date: 20090127
  Receipt Date: 20090119
  Transmission Date: 20090719
  Serious: No
  Sender: FDA-Public Use
  Company Number: SE-ASTRAZENECA-2009SE00402

PATIENT
  Age: 17 Year
  Sex: Female

DRUGS (5)
  1. SEROQUEL [Suspect]
     Indication: SCHIZOPHRENIA
     Route: 048
     Dates: start: 20070701
  2. SEROQUEL [Suspect]
     Route: 048
  3. PROPAVAN [Concomitant]
  4. DIAZEPAM [Concomitant]
  5. LAKTULOS RECIP [Concomitant]

REACTIONS (1)
  - NEUTROPENIA [None]
